FAERS Safety Report 4325907-5 (Version None)
Quarter: 2004Q1

REPORT INFORMATION
  Report Type: 
  Country: None (occurrence: None)
  Receive Date: 20040323
  Receipt Date: 20040304
  Transmission Date: 20041129
  Serious: Yes (Hospitalization)
  Sender: FDA-Public Use
  Company Number: 20040300209

PATIENT
  Age: 46 Year
  Sex: Male

DRUGS (4)
  1. PROMETHAZINE [Suspect]
     Dates: start: 20040301, end: 20040301
  2. DECADRON [Concomitant]
  3. DILAUDID [Concomitant]
  4. NARCAN [Concomitant]

REACTIONS (1)
  - COMA [None]
